FAERS Safety Report 7040630-4 (Version None)
Quarter: 2010Q4

REPORT INFORMATION
  Report Type: 
  Country: None (occurrence: None)
  Receive Date: 20101012
  Receipt Date: 20101006
  Transmission Date: 20110411
  Serious: Yes (Death, Other)
  Sender: FDA-Public Use
  Company Number: US-AMGEN-US339371

PATIENT
  Sex: Female

DRUGS (3)
  1. NPLATE [Suspect]
     Indication: IDIOPATHIC THROMBOCYTOPENIC PURPURA
     Dates: start: 20081121, end: 20090930
  2. CORTICOSTEROID NOS [Concomitant]
     Dates: start: 20010503
  3. IMMU-G [Concomitant]
     Dates: start: 20060101

REACTIONS (2)
  - DEATH [None]
  - DRUG INEFFECTIVE [None]
